FAERS Safety Report 8299257-9 (Version None)
Quarter: 2012Q2

REPORT INFORMATION
  Report Type: 
  Country: None (occurrence: None)
  Receive Date: 20120419
  Receipt Date: 20120406
  Transmission Date: 20120825
  Serious: Yes (Hospitalization)
  Sender: FDA-Public Use
  Company Number: FR-JNJFOC-20120408300

PATIENT
  Sex: Female

DRUGS (13)
  1. SUFENTANIL CITRATE [Concomitant]
     Indication: ANAESTHESIA
     Dates: start: 20120312, end: 20120312
  2. XARELTO [Suspect]
     Indication: THROMBOSIS PROPHYLAXIS
     Route: 048
     Dates: start: 20120312, end: 20120301
  3. ACETAMINOPHEN [Concomitant]
  4. NIMBEX [Concomitant]
     Indication: ANAESTHESIA
     Dates: start: 20120312, end: 20120312
  5. ACUPAN [Concomitant]
  6. LOVENOX [Concomitant]
  7. XARELTO [Suspect]
     Indication: HIP ARTHROPLASTY
     Route: 048
     Dates: start: 20120312, end: 20120301
  8. KETAMINE HCL [Concomitant]
     Indication: ANAESTHESIA
     Dates: start: 20120312, end: 20120312
  9. LEVOTHYROXINE SODIUM [Concomitant]
  10. PROPOFOL [Concomitant]
     Indication: ANAESTHESIA
     Dates: start: 20120312, end: 20120312
  11. DEXAMETHASONE [Concomitant]
  12. MIDAZOLAM HCL [Concomitant]
     Indication: ANAESTHESIA
     Dates: start: 20120312, end: 20120312
  13. VENOFER [Concomitant]
     Route: 042

REACTIONS (4)
  - LIP OEDEMA [None]
  - TACHYCARDIA [None]
  - RASH MACULAR [None]
  - OEDEMA PERIPHERAL [None]
